FAERS Safety Report 17481339 (Version 1)
Quarter: 2020Q1

REPORT INFORMATION
  Report Type: Spontaneous
  Country: US (occurrence: US)
  Receive Date: 20200302
  Receipt Date: 20200302
  Transmission Date: 20200409
  Serious: No
  Sender: FDA-Public Use
  Company Number: US-PRINSTON PHARMACEUTICAL INC.-2019PRN00955

PATIENT
  Age: 67 Year
  Sex: Male

DRUGS (2)
  1. ^ANOTHER MEDICINE^ UNSPECIFIED [Suspect]
     Active Substance: UNSPECIFIED INGREDIENT
  2. CYCLOBENZAPRINE HYDROCHLORIDE. [Suspect]
     Active Substance: CYCLOBENZAPRINE HYDROCHLORIDE
     Indication: BACK DISORDER
     Dosage: FOR 1.5 DAYS

REACTIONS (3)
  - Feeling abnormal [Unknown]
  - Off label use [Recovered/Resolved]
  - Mental disorder [Unknown]
